FAERS Safety Report 9058334 (Version 3)
Quarter: 2013Q1

REPORT INFORMATION
  Report Type: Spontaneous
  Country: US (occurrence: US)
  Receive Date: 20130211
  Receipt Date: 20130322
  Transmission Date: 20140127
  Serious: Yes (Other)
  Sender: FDA-Public Use
  Company Number: US-AMGEN-USASP2013007638

PATIENT
  Age: 59 Year
  Sex: Female
  Weight: 63.49 kg

DRUGS (11)
  1. ENBREL [Suspect]
     Indication: RHEUMATOID ARTHRITIS
     Dosage: 50 MG, QWK
     Route: 058
  2. CYMBALTA [Concomitant]
     Dosage: 20 MG, UNK
  3. ATIVAN [Concomitant]
     Dosage: 1 MG, UNK
  4. AMBIEN [Concomitant]
     Dosage: 5 MG, UNK
  5. SOMA [Concomitant]
     Dosage: UNK
  6. SYNTHROID [Concomitant]
     Dosage: 100 MUG, UNK
  7. NADOLOL [Concomitant]
     Dosage: 120 MG, UNK
  8. OXYCODONE [Concomitant]
     Dosage: 5 MG, UNK
  9. VITAMIN B-12 [Concomitant]
     Dosage: 500 MUG, UNK
  10. FOLIC ACID [Concomitant]
     Dosage: UNK
  11. SOMA CMPD [Concomitant]
     Dosage: UNK

REACTIONS (13)
  - Haemorrhagic diathesis [Unknown]
  - Increased tendency to bruise [Unknown]
  - Eye movement disorder [Unknown]
  - Headache [Unknown]
  - Lethargy [Unknown]
  - Fatigue [Unknown]
  - Protein urine present [Unknown]
  - Petechiae [Unknown]
  - Contusion [Unknown]
  - Injection site mass [Unknown]
  - Injection site pruritus [Unknown]
  - Injection site swelling [Unknown]
  - Injection site bruising [Unknown]
